FAERS Safety Report 9896331 (Version 1)
Quarter: 2014Q1

REPORT INFORMATION
  Report Type: Spontaneous
  Country: US (occurrence: US)
  Receive Date: 20140213
  Receipt Date: 20140213
  Transmission Date: 20141002
  Serious: No
  Sender: FDA-Public Use
  Company Number: US-BRISTOL-MYERS SQUIBB COMPANY-19072982

PATIENT
  Age: 46 Year
  Sex: Female
  Weight: 56.23 kg

DRUGS (3)
  1. ABATACEPT SUBQ INJECTION 125MG/ML [Suspect]
     Indication: RHEUMATOID ARTHRITIS
     Route: 058
  2. ARAVA [Concomitant]
     Indication: PAIN
  3. VOLTAREN [Concomitant]
     Indication: PAIN

REACTIONS (2)
  - Drug dose omission [Unknown]
  - Product quality issue [Unknown]
